FAERS Safety Report 4415841-4 (Version None)
Quarter: 2004Q3

REPORT INFORMATION
  Report Type: 
  Country: None (occurrence: None)
  Receive Date: 20040730
  Receipt Date: 20040723
  Transmission Date: 20050211
  Serious: Yes (Death)
  Sender: FDA-Public Use
  Company Number: 2004-07-0492

PATIENT
  Age: 70 Year
  Sex: Female

DRUGS (1)
  1. INTRON A [Suspect]
     Indication: MULTIPLE MYELOMA
     Dosage: 6 MIU TIW INTRAMUSCULAR
     Route: 030
     Dates: start: 20040607, end: 20040709

REACTIONS (1)
  - DEATH [None]
